FAERS Safety Report 11190904 (Version 3)
Quarter: 2015Q3

REPORT INFORMATION
  Report Type: Spontaneous
  Country: US (occurrence: US)
  Receive Date: 20150615
  Receipt Date: 20150911
  Transmission Date: 20151125
  Serious: No
  Sender: FDA-Public Use
  Company Number: US-GLAXOSMITHKLINE-US2015082870

PATIENT
  Sex: Male

DRUGS (8)
  1. NITRO PATCH [Concomitant]
     Active Substance: NITROGLYCERIN
  2. COREG [Suspect]
     Active Substance: CARVEDILOL
     Indication: PRODUCT USED FOR UNKNOWN INDICATION
     Dosage: UNK
  3. NEXIUM [Concomitant]
     Active Substance: ESOMEPRAZOLE MAGNESIUM
  4. PLAVIX [Concomitant]
     Active Substance: CLOPIDOGREL BISULFATE
  5. ALDACTONE [Concomitant]
     Active Substance: SPIRONOLACTONE
  6. VIMPAT [Concomitant]
     Active Substance: LACOSAMIDE
  7. CARVEDILOL TABLET [Suspect]
     Active Substance: CARVEDILOL
     Indication: CARDIAC DISORDER
     Dosage: 12.5 MG, BID
  8. CRESTOR [Concomitant]
     Active Substance: ROSUVASTATIN CALCIUM

REACTIONS (4)
  - Dyspnoea [Recovered/Resolved]
  - Drug ineffective [Recovered/Resolved]
  - Product quality issue [Unknown]
  - Fatigue [Not Recovered/Not Resolved]
